FAERS Safety Report 7918527-4 (Version None)
Quarter: 2011Q4

REPORT INFORMATION
  Report Type: 
  Country: None (occurrence: None)
  Receive Date: 20111116
  Receipt Date: 20111111
  Transmission Date: 20120403
  Serious: Yes (Other)
  Sender: FDA-Public Use
  Company Number: DE-PFIZER INC-2011229218

PATIENT
  Age: 70 Year
  Sex: Female
  Weight: 119.8 kg

DRUGS (3)
  1. TILIDINE [Concomitant]
     Indication: PAIN
     Dosage: 150 MG, DAILY
     Route: 048
     Dates: start: 20110601
  2. LYRICA [Suspect]
     Indication: PAIN
     Dosage: 150 MG, DAILY
     Route: 048
     Dates: start: 20110601
  3. AMITRIPTYLINE [Concomitant]
     Indication: PAIN
     Dosage: 10 MG, DAILY
     Route: 048
     Dates: start: 20110601

REACTIONS (5)
  - DIZZINESS [None]
  - WITHDRAWAL SYNDROME [None]
  - MYDRIASIS [None]
  - NAUSEA [None]
  - COLD SWEAT [None]
